FAERS Safety Report 8796682 (Version 1)
Quarter: 2012Q4

REPORT INFORMATION
  Report Type: 
  Country: CA (occurrence: CA)
  Receive Date: 20120919
  Receipt Date: 20120919
  Transmission Date: 20130627
  Serious: Yes (Hospitalization)
  Sender: FDA-Public Use
  Company Number: CA-B.I. PHARMACEUTICALS,INC./RIDGEFIELD-2012-CN-01839CN

PATIENT
  Age: 96 Year
  Sex: Female

DRUGS (8)
  1. PRADAX [Suspect]
     Indication: ATRIAL FIBRILLATION
     Dosage: 220 mg
     Dates: start: 20120508, end: 20120612
  2. DIDROCAL [Concomitant]
  3. ATORVASTATIN [Concomitant]
  4. DIGOXIN [Concomitant]
  5. LYRICA [Concomitant]
  6. SPIROTONE [Concomitant]
  7. PANTOPRAZOLE [Concomitant]
  8. SYNTHROID [Concomitant]

REACTIONS (1)
  - Renal failure acute [Recovered/Resolved]
